FAERS Safety Report 9640716 (Version 1)
Quarter: 2013Q4

REPORT INFORMATION
  Report Type: Report from Study
  Country: US (occurrence: US)
  Receive Date: 20131023
  Receipt Date: 20131023
  Transmission Date: 20140711
  Serious: No
  Sender: FDA-Public Use
  Company Number: US-ABBVIE-12P-163-1014126-00

PATIENT
  Age: 36 Year
  Sex: Female
  Weight: 123.94 kg

DRUGS (3)
  1. LUPRON DEPOT [Suspect]
     Indication: MENSTRUATION IRREGULAR
     Dates: start: 201210
  2. LEXAPRO [Concomitant]
     Indication: ANXIETY
  3. XANAX [Concomitant]
     Indication: ANXIETY

REACTIONS (2)
  - Pain in extremity [Not Recovered/Not Resolved]
  - Off label use [Not Recovered/Not Resolved]
